FAERS Safety Report 6960207-6 (Version None)
Quarter: 2010Q3

REPORT INFORMATION
  Report Type: 
  Country: None (occurrence: None)
  Receive Date: 20100901
  Receipt Date: 20100305
  Transmission Date: 20110219
  Serious: Yes (Other)
  Sender: FDA-Public Use
  Company Number: GB-ASTRAZENECA-2010SE09768

PATIENT
  Age: 50 Year
  Sex: Female

DRUGS (7)
  1. LIGNOCAINE WITH ADRENALINE [Suspect]
     Indication: MIGRAINE
  2. CITANEST WITH OCTAPRESSIN [Interacting]
     Indication: DENTAL CARE
     Dates: start: 20100224
  3. RIZATRIPTAN BENZOATE [Interacting]
  4. SCANDONEST PLAIN [Interacting]
  5. SEPTANEST [Interacting]
  6. PIZOTIFEN [Concomitant]
  7. SERTRALINE HYDROCHLORIDE [Concomitant]

REACTIONS (3)
  - DISORIENTATION [None]
  - DRUG INTERACTION [None]
  - TACHYCARDIA [None]
